FAERS Safety Report 16846100 (Version 3)
Quarter: 2020Q3

REPORT INFORMATION
  Report Type: Spontaneous
  Country: US (occurrence: US)
  Receive Date: 20190924
  Receipt Date: 20200925
  Transmission Date: 20201102
  Serious: Yes (Hospitalization, Other)
  Sender: FDA-Public Use
  Company Number: US-GILEAD-2019-0429620

PATIENT
  Age: 42 Year
  Sex: Male
  Weight: 94.79 kg

DRUGS (31)
  1. NORVIR [Concomitant]
     Active Substance: RITONAVIR
  2. ZIAGEN [Concomitant]
     Active Substance: ABACAVIR SULFATE
  3. VIREAD [Suspect]
     Active Substance: TENOFOVIR DISOPROXIL FUMARATE
     Indication: HIV INFECTION
     Dosage: UNK
     Route: 048
     Dates: start: 2001, end: 2005
  4. PREDNISONE. [Concomitant]
     Active Substance: PREDNISONE
  5. PENICILLIN [PENICILLIN NOS] [Concomitant]
     Active Substance: PENICILLIN
  6. DEXILANT [Concomitant]
     Active Substance: DEXLANSOPRAZOLE
  7. TESTOSTERONE. [Concomitant]
     Active Substance: TESTOSTERONE
  8. FLUCONAZOLE. [Concomitant]
     Active Substance: FLUCONAZOLE
  9. MINOCYCLINE [Concomitant]
     Active Substance: MINOCYCLINE HYDROCHLORIDE
  10. OLANZAPINE. [Concomitant]
     Active Substance: OLANZAPINE
  11. LANSOPRAZOLE. [Concomitant]
     Active Substance: LANSOPRAZOLE
  12. NARCAN [Concomitant]
     Active Substance: NALOXONE HYDROCHLORIDE
  13. EPIVIR [Concomitant]
     Active Substance: LAMIVUDINE
  14. VIRAMUNE [Concomitant]
     Active Substance: NEVIRAPINE
  15. FLUVIRIN [INFLUENZA VACCINE INACT SAG 3V] [Concomitant]
  16. ATENOLOL. [Concomitant]
     Active Substance: ATENOLOL
  17. LIDOCAINE. [Concomitant]
     Active Substance: LIDOCAINE
  18. TRIUMEQ [Concomitant]
     Active Substance: ABACAVIR SULFATE\DOLUTEGRAVIR SODIUM\LAMIVUDINE
  19. LAMOTRIGINE. [Concomitant]
     Active Substance: LAMOTRIGINE
  20. MARIJUANA [Concomitant]
     Active Substance: CANNABIS SATIVA SUBSP. INDICA TOP
  21. WARFARIN SODIUM. [Concomitant]
     Active Substance: WARFARIN SODIUM
  22. RITONAVIR. [Concomitant]
     Active Substance: RITONAVIR
     Dosage: UNK
     Dates: start: 20180409
  23. ZOLPIDEM [Concomitant]
     Active Substance: ZOLPIDEM TARTRATE
  24. PREZISTA [Concomitant]
     Active Substance: DARUNAVIR ETHANOLATE
  25. CEFUROXIME. [Concomitant]
     Active Substance: CEFUROXIME
  26. DULOXETINE. [Concomitant]
     Active Substance: DULOXETINE
  27. AZELASTINE. [Concomitant]
     Active Substance: AZELASTINE HYDROCHLORIDE
  28. EZETIMIBE. [Concomitant]
     Active Substance: EZETIMIBE
  29. MOMETASONE [Concomitant]
     Active Substance: MOMETASONE
  30. CEPHALEXIN [CEFALEXIN] [Concomitant]
     Active Substance: CEPHALEXIN
  31. ATORVASTATIN [Concomitant]
     Active Substance: ATORVASTATIN

REACTIONS (18)
  - Loss of personal independence in daily activities [Not Recovered/Not Resolved]
  - Osteoporosis [Unknown]
  - Foot fracture [Unknown]
  - Ankle fracture [Unknown]
  - Amnesia [Not Recovered/Not Resolved]
  - Pain [Not Recovered/Not Resolved]
  - Anxiety [Not Recovered/Not Resolved]
  - Fatigue [Unknown]
  - Emotional distress [Not Recovered/Not Resolved]
  - Chronic kidney disease [Not Recovered/Not Resolved]
  - Osteopenia [Recovered/Resolved]
  - Depression [Not Recovered/Not Resolved]
  - End stage renal disease [Recovered/Resolved]
  - Rib fracture [Recovered/Resolved]
  - Anhedonia [Not Recovered/Not Resolved]
  - Decreased activity [Not Recovered/Not Resolved]
  - Economic problem [Not Recovered/Not Resolved]
  - Quality of life decreased [Not Recovered/Not Resolved]

NARRATIVE: CASE EVENT DATE: 2007
